FAERS Safety Report 14831067 (Version 2)
Quarter: 2018Q3

REPORT INFORMATION
  Report Type: Report from Study
  Country: None (occurrence: BR)
  Receive Date: 20180501
  Receipt Date: 20180903
  Transmission Date: 20181010
  Serious: Yes (Hospitalization)
  Sender: FDA-Public Use
  Company Number: BR-ABBVIE-18K-020-2334388-00

PATIENT
  Age: 56 Year
  Sex: Male
  Weight: 93 kg

DRUGS (11)
  1. METHOTREXATE. [Suspect]
     Active Substance: METHOTREXATE
     Indication: RHEUMATOID ARTHRITIS
     Route: 065
  2. FOLIC ACID. [Suspect]
     Active Substance: FOLIC ACID
     Indication: RHEUMATOID ARTHRITIS
     Route: 065
  3. PREDSIM [Suspect]
     Active Substance: PREDNISOLONE
     Indication: PAIN
  4. HUMIRA [Suspect]
     Active Substance: ADALIMUMAB
     Indication: RHEUMATOID ARTHRITIS
     Route: 058
     Dates: start: 20171204, end: 20180413
  5. DIPIRONE [Suspect]
     Active Substance: METAMIZOLE SODIUM
     Indication: RHEUMATOID ARTHRITIS
     Route: 065
  6. AZULFIDINE [Suspect]
     Active Substance: SULFASALAZINE
     Indication: RHEUMATOID ARTHRITIS
     Route: 065
  7. KETOROLAC [Suspect]
     Active Substance: KETOROLAC\KETOROLAC TROMETHAMINE
     Indication: PAIN
  8. ATENOLOL. [Concomitant]
     Active Substance: ATENOLOL
     Indication: HYPERTENSION
  9. KETOROLAC [Suspect]
     Active Substance: KETOROLAC\KETOROLAC TROMETHAMINE
     Indication: RHEUMATOID ARTHRITIS
     Route: 065
  10. PREDSIM [Suspect]
     Active Substance: PREDNISOLONE
     Indication: RHEUMATOID ARTHRITIS
     Route: 065
  11. DIPIRONE [Suspect]
     Active Substance: METAMIZOLE SODIUM
     Indication: PYREXIA

REACTIONS (19)
  - Immunodeficiency [Not Recovered/Not Resolved]
  - Lower respiratory tract infection bacterial [Not Recovered/Not Resolved]
  - Musculoskeletal disorder [Unknown]
  - Skin disorder [Unknown]
  - Malaise [Recovered/Resolved]
  - Hypertension [Recovered/Resolved]
  - Limb mass [Recovering/Resolving]
  - Emphysema [Not Recovered/Not Resolved]
  - Joint stiffness [Recovering/Resolving]
  - Head discomfort [Recovered/Resolved]
  - Neuropathy peripheral [Recovering/Resolving]
  - Swelling [Recovered/Resolved]
  - Influenza [Recovered/Resolved]
  - Dyspnoea [Recovered/Resolved]
  - Peripheral swelling [Recovered/Resolved]
  - Lung disorder [Not Recovered/Not Resolved]
  - Hepatomegaly [Unknown]
  - Musculoskeletal stiffness [Recovered/Resolved]
  - Paraesthesia [Recovering/Resolving]

NARRATIVE: CASE EVENT DATE: 201803
